FAERS Safety Report 6915793-9 (Version None)
Quarter: 2010Q3

REPORT INFORMATION
  Report Type: 
  Country: None (occurrence: None)
  Receive Date: 20100810
  Receipt Date: 20100312
  Transmission Date: 20110219
  Serious: No
  Sender: FDA-Public Use
  Company Number: A0849984A

PATIENT
  Age: 38 Year
  Sex: Female

DRUGS (3)
  1. PAROXETINE HCL [Suspect]
     Indication: DEPRESSION
     Dosage: 20MG PER DAY
     Route: 048
     Dates: start: 20030101
  2. LIALDA [Concomitant]
  3. SERTRALINE HYDROCHLORIDE [Concomitant]

REACTIONS (2)
  - ANXIETY [None]
  - RETCHING [None]
